FAERS Safety Report 11450447 (Version 1)
Quarter: 2015Q3

REPORT INFORMATION
  Report Type: Spontaneous
  Country: IT (occurrence: IT)
  Receive Date: 20150903
  Receipt Date: 20150903
  Transmission Date: 20151125
  Serious: Yes (Hospitalization)
  Sender: FDA-Public Use
  Company Number: IT-TEVA-576770ACC

PATIENT
  Age: 86 Year
  Sex: Female

DRUGS (7)
  1. METFONORM - 500 MG COMPRESSE RIVESTITE CON FILM [Concomitant]
     Indication: DIABETES MELLITUS
  2. COUMADIN [Interacting]
     Active Substance: WARFARIN SODIUM
     Indication: DEEP VEIN THROMBOSIS
     Dosage: 18.75 MG WEEKLY
     Route: 048
     Dates: start: 20100105, end: 20150406
  3. NORVASC - 10 MG COMPRESSE [Concomitant]
     Indication: HYPERTENSION
  4. TICLOPIDINE HYDROCHLORIDE. [Suspect]
     Active Substance: TICLOPIDINE HYDROCHLORIDE
     Indication: PRODUCT USED FOR UNKNOWN INDICATION
     Dosage: 250 MILLIGRAM DAILY;
     Route: 048
     Dates: start: 20150101, end: 20150406
  5. PLAVIX [Interacting]
     Active Substance: CLOPIDOGREL BISULFATE
     Indication: PRODUCT USED FOR UNKNOWN INDICATION
     Dosage: 75 MILLIGRAM DAILY;
     Route: 048
     Dates: start: 20150101, end: 20150406
  6. CARDURA - 2 MG COMPRESSE [Concomitant]
     Indication: HYPERTENSION
  7. OMEPRAZEN - 20 MG CAPSULE RIGIDE GASTRORESISTENTI [Concomitant]
     Indication: PRODUCT USED FOR UNKNOWN INDICATION

REACTIONS (3)
  - Epistaxis [Recovered/Resolved]
  - Drug interaction [Recovered/Resolved]
  - Anaemia [Recovered/Resolved]

NARRATIVE: CASE EVENT DATE: 20150406
